FAERS Safety Report 5558477-4 (Version None)
Quarter: 2007Q4

REPORT INFORMATION
  Report Type: 
  Country: None (occurrence: None)
  Receive Date: 20071214
  Receipt Date: 20070920
  Transmission Date: 20080405
  Serious: No
  Sender: FDA-Public Use
  Company Number: US-ABBOTT-07P-163-0378878-00

PATIENT
  Sex: Male
  Weight: 118.2 kg

DRUGS (12)
  1. HUMIRA [Suspect]
     Indication: CROHN'S DISEASE
     Dosage: 160MG, LOADING DOSE
     Dates: start: 20070818, end: 20070903
  2. HUMIRA [Suspect]
     Route: 058
     Dates: start: 20070917
  3. METOPROLOL SUCCINATE [Concomitant]
     Indication: HYPERTENSION
     Route: 048
  4. ALPRAZOLAM [Concomitant]
     Indication: DRUG USE FOR UNKNOWN INDICATION
     Route: 048
  5. UNKNOWN MEDICATION [Concomitant]
     Indication: CROHN'S DISEASE
  6. SULFASALAZINE [Concomitant]
     Indication: CROHN'S DISEASE
     Dosage: 3 EVERY AM AND AT NOON AND TWO AT NIGHT
     Route: 048
  7. AZATHIOPRINE [Concomitant]
     Indication: CROHN'S DISEASE
     Dosage: 2 EVERY AM AND  EVERY PM
     Route: 048
  8. FOLIC ACID [Concomitant]
     Indication: CROHN'S DISEASE
     Route: 048
  9. ALPRAZALINE [Concomitant]
     Indication: ANXIETY
     Route: 048
  10. BUPROPION HCL [Concomitant]
     Indication: ANXIETY
     Route: 048
  11. METOPROLOL [Concomitant]
     Indication: HYPERTENSION
     Route: 048
  12. LITHIUM CARBONATE [Concomitant]
     Indication: ANXIETY
     Route: 048

REACTIONS (8)
  - DIZZINESS [None]
  - HEADACHE [None]
  - IMPAIRED HEALING [None]
  - NODULE ON EXTREMITY [None]
  - OEDEMA PERIPHERAL [None]
  - PARAESTHESIA [None]
  - PROCEDURAL COMPLICATION [None]
  - PRURITUS [None]
